FAERS Safety Report 18139360 (Version 2)
Quarter: 2020Q3

REPORT INFORMATION
  Report Type: Spontaneous
  Country: EG (occurrence: EG)
  Receive Date: 20200812
  Receipt Date: 20200819
  Transmission Date: 20201103
  Serious: Yes (Death)
  Sender: FDA-Public Use
  Company Number: EG-GE HEALTHCARE LIFE SCIENCES-2020CSU003535

PATIENT

DRUGS (2)
  1. OMNIPAQUE [Suspect]
     Active Substance: IOHEXOL
     Indication: PRODUCT USED FOR UNKNOWN INDICATION
  2. OMNIPAQUE [Suspect]
     Active Substance: IOHEXOL
     Indication: COMPUTERISED TOMOGRAM
     Dosage: 70 ML, SINGLE
     Route: 042
     Dates: start: 20200805, end: 20200805

REACTIONS (4)
  - Acute kidney injury [Fatal]
  - Abdominal pain [Fatal]
  - Back pain [Fatal]
  - Vomiting [Fatal]
